FAERS Safety Report 9345730 (Version 1)
Quarter: 2013Q2

REPORT INFORMATION
  Report Type: Spontaneous
  Country: US (occurrence: US)
  Receive Date: 20130613
  Receipt Date: 20130613
  Transmission Date: 20140414
  Serious: No
  Sender: FDA-Public Use
  Company Number: US-PFIZER INC-2013174393

PATIENT
  Sex: Female
  Weight: 80.3 kg

DRUGS (3)
  1. PREMARIN [Suspect]
     Indication: URINARY TRACT INFECTION
     Dosage: 0.5 G, 1X/DAY
     Route: 067
     Dates: start: 20130606
  2. METFORMIN [Concomitant]
     Indication: DIABETES MELLITUS
     Dosage: 1000 MG, 2X/DAY
  3. GLYBURIDE [Concomitant]
     Indication: DIABETES MELLITUS
     Dosage: 10 MG, 2X/DAY

REACTIONS (1)
  - Muscle spasms [Recovered/Resolved]
